FAERS Safety Report 6925466-4 (Version None)
Quarter: 2010Q3

REPORT INFORMATION
  Report Type: 
  Country: None (occurrence: None)
  Receive Date: 20100813
  Receipt Date: 20100813
  Transmission Date: 20110219
  Serious: Yes (Hospitalization)
  Sender: FDA-Public Use
  Company Number: None

PATIENT
  Age: 17 Year
  Sex: Female
  Weight: 123.0609 kg

DRUGS (1)
  1. ABILIFY [Suspect]
     Indication: MAJOR DEPRESSION
     Dosage: 5MG BID PO
     Route: 048

REACTIONS (3)
  - DIABETIC HYPEROSMOLAR COMA [None]
  - KETOACIDOSIS [None]
  - MENTAL STATUS CHANGES [None]
